FAERS Safety Report 6373970-2 (Version None)
Quarter: 2009Q3

REPORT INFORMATION
  Report Type: 
  Country: None (occurrence: None)
  Receive Date: 20090924
  Receipt Date: 20090922
  Transmission Date: 20100115
  Serious: Yes (Death)
  Sender: FDA-Public Use
  Company Number: FR-ROCHE-646138

PATIENT
  Age: 49 Year
  Sex: Male
  Weight: 110 kg

DRUGS (2)
  1. TAMIFLU [Suspect]
     Indication: DRUG USE FOR UNKNOWN INDICATION
     Route: 065
     Dates: start: 20090723, end: 20090725
  2. SYMBICORT [Concomitant]
     Indication: ASTHMA

REACTIONS (2)
  - INFLUENZA [None]
  - PULMONARY OEDEMA [None]
